FAERS Safety Report 5253481-8 (Version None)
Quarter: 2007Q1

REPORT INFORMATION
  Report Type: 
  Country: None (occurrence: None)
  Receive Date: 20070301
  Receipt Date: 20070227
  Transmission Date: 20070707
  Serious: Yes (Hospitalization)
  Sender: FDA-Public Use
  Company Number: US-BOEHRINGER INGELHEIM PHARMACEUTICALS, INC.-2007-BP-01980BP

PATIENT
  Sex: Male

DRUGS (2)
  1. FLOMAX [Suspect]
     Indication: PROSTATE EXAMINATION ABNORMAL
     Route: 048
     Dates: start: 20061001
  2. IBUPROFEN [Concomitant]
     Indication: MUSCLE INJURY
     Route: 048

REACTIONS (4)
  - CHOLELITHIASIS [None]
  - DRUG INEFFECTIVE [None]
  - POLLAKIURIA [None]
  - URINE FLOW DECREASED [None]
